FAERS Safety Report 7315599-5 (Version None)
Quarter: 2011Q1

REPORT INFORMATION
  Report Type: 
  Country: None (occurrence: None)
  Receive Date: 20110225
  Receipt Date: 20110221
  Transmission Date: 20110831
  Serious: Yes (Hospitalization)
  Sender: FDA-Public Use
  Company Number: US-BRISTOL-MYERS SQUIBB COMPANY-15561541

PATIENT
  Age: 65 Year
  Sex: Female
  Weight: 128 kg

DRUGS (3)
  1. ERBITUX [Suspect]
     Indication: NON-SMALL CELL LUNG CANCER
     Dosage: LAST ADMINISTRATED DATE :05JAN2011.
     Dates: start: 20100923
  2. CARBOPLATIN [Suspect]
     Indication: NON-SMALL CELL LUNG CANCER
     Dosage: LAST ADMIN DATE:05JAN2011.
     Dates: start: 20100923
  3. TAXOL [Suspect]
     Indication: NON-SMALL CELL LUNG CANCER
     Dosage: LAST ADMINISTRATED DATE :05JAN2011.
     Dates: start: 20100923

REACTIONS (6)
  - WOUND INFECTION [None]
  - PLATELET COUNT DECREASED [None]
  - HAEMOGLOBIN DECREASED [None]
  - HYPERGLYCAEMIA [None]
  - WHITE BLOOD CELL COUNT DECREASED [None]
  - HYPOALBUMINAEMIA [None]
